FAERS Safety Report 21247934 (Version 4)
Quarter: 2022Q4

REPORT INFORMATION
  Report Type: Report from Study
  Country: US (occurrence: US)
  Receive Date: 20220824
  Receipt Date: 20221115
  Transmission Date: 20230113
  Serious: No
  Sender: FDA-Public Use
  Company Number: US-NOVARTISTESTPH-NVSC2022US186883

PATIENT
  Sex: Female
  Weight: 52.154 kg

DRUGS (1)
  1. ENTRESTO [Suspect]
     Active Substance: SACUBITRIL\VALSARTAN
     Indication: Cardiac failure
     Dosage: 0.5 DOSAGE FORM, (ONE HALF TABLET) BID (24.26 MG)
     Route: 048
     Dates: start: 202205

REACTIONS (7)
  - Depressed mood [Recovering/Resolving]
  - Hypotension [Recovered/Resolved]
  - Heart rate increased [Recovering/Resolving]
  - Muscle spasms [Unknown]
  - Dyspnoea [Recovering/Resolving]
  - Wrong technique in product usage process [Unknown]
  - Prescribed underdose [Unknown]

NARRATIVE: CASE EVENT DATE: 20220101
